FAERS Safety Report 6784781-8 (Version None)
Quarter: 2010Q2

REPORT INFORMATION
  Report Type: 
  Country: None (occurrence: None)
  Receive Date: 20100622
  Receipt Date: 20100608
  Transmission Date: 20101027
  Serious: Yes (Other)
  Sender: FDA-Public Use
  Company Number: GB-MYLANLABS-2010S1010187

PATIENT
  Age: 58 Year
  Sex: Male

DRUGS (3)
  1. BISOPROLOL [Suspect]
     Indication: DRUG USE FOR UNKNOWN INDICATION
  2. WARFARIN [Suspect]
     Indication: ATRIAL FIBRILLATION
  3. PROPAFENONE HCL [Suspect]
     Indication: ATRIAL FIBRILLATION

REACTIONS (1)
  - ATRIAL TACHYCARDIA [None]
